FAERS Safety Report 16520383 (Version 1)
Quarter: 2019Q3

REPORT INFORMATION
  Report Type: Spontaneous
  Country: GB (occurrence: GB)
  Receive Date: 20190702
  Receipt Date: 20190702
  Transmission Date: 20191004
  Serious: Yes (Other)
  Sender: FDA-Public Use
  Company Number: GB-TEVA-2019-GB-1071293

PATIENT
  Age: 61 Year
  Sex: Male
  Weight: 129 kg

DRUGS (10)
  1. LOSARTAN. [Concomitant]
     Active Substance: LOSARTAN
     Dosage: 1DOSAGE FORM PER DAY
     Dates: start: 20180906, end: 20190528
  2. IBUPROFEN. [Concomitant]
     Active Substance: IBUPROFEN
     Indication: ARTHRALGIA
     Dosage: THREE TIMES A DAY
     Dates: start: 20190218, end: 20190528
  3. CODEINE PHOSPHATE [Concomitant]
     Active Substance: CODEINE PHOSPHATE
     Indication: PAIN
     Dosage: ONE FOUR TIMES A DAY
     Dates: start: 20181227, end: 20190528
  4. BECLOMETASONE [Concomitant]
     Active Substance: BECLOMETHASONE DIPROPIONATE
     Dosage: 4DOSAGE FORM PER DAY
     Dates: start: 20171205, end: 20190528
  5. DOXAZOSIN [Concomitant]
     Active Substance: DOXAZOSIN MESYLATE
     Dosage: [08:00]
     Dates: start: 20181011, end: 20190528
  6. OMEPRAZOLE. [Concomitant]
     Active Substance: OMEPRAZOLE
     Dosage: 08:00
     Dates: start: 20180918, end: 20190528
  7. AMOXICILLIN. [Concomitant]
     Active Substance: AMOXICILLIN
     Dosage: [08:00-1][12:00-1][16:00-1]
     Dates: start: 20190416, end: 20190423
  8. COCODAMOL [Concomitant]
     Active Substance: ACETAMINOPHEN\CODEINE PHOSPHATE
     Dosage: TAKE TWO UP TO FOUR TIMES DAILY
     Dates: start: 20190208, end: 20190528
  9. AMLODIPINE [Suspect]
     Active Substance: AMLODIPINE BESYLATE
     Dates: start: 20190528
  10. ZEROBASE [Concomitant]
     Active Substance: MINERAL OIL\PARAFFIN
     Dosage: UNCHECKED UNITS
     Dates: start: 20171113, end: 20190528

REACTIONS (1)
  - Peripheral swelling [Recovered/Resolved]

NARRATIVE: CASE EVENT DATE: 20190530
